FAERS Safety Report 23337431 (Version 3)
Quarter: 2024Q1

REPORT INFORMATION
  Report Type: Spontaneous
  Country: US (occurrence: US)
  Receive Date: 20231226
  Receipt Date: 20240220
  Transmission Date: 20240410
  Serious: Yes (Other)
  Sender: FDA-Public Use
  Company Number: US-SA-SAC20231225000232

PATIENT
  Age: 1 Day
  Sex: Female
  Weight: 1.72 kg

DRUGS (1)
  1. NEXVIAZYME [Suspect]
     Active Substance: AVALGLUCOSIDASE ALFA-NGPT
     Dosage: 2400 (UNITS NOT REPORTED), QOW
     Route: 064

REACTIONS (4)
  - Hyperthyroidism [Unknown]
  - Foetal exposure timing unspecified [Unknown]
  - Premature baby [Unknown]
  - Underweight [Unknown]

NARRATIVE: CASE EVENT DATE: 20230101
